FAERS Safety Report 9394070 (Version 1)
Quarter: 2013Q3

REPORT INFORMATION
  Report Type: Spontaneous
  Country: US (occurrence: US)
  Receive Date: 20130710
  Receipt Date: 20130710
  Transmission Date: 20140515
  Serious: No
  Sender: FDA-Public Use
  Company Number: US-009507513-1306USA013659

PATIENT
  Sex: Male

DRUGS (2)
  1. COSOPT [Suspect]
     Dosage: 1 DROP AFFECTED EYE TWICE A DAY
     Route: 047
     Dates: start: 20130525
  2. DORZOLAMIDE HYDROCHLORIDE/TIMOLOL MALEATE [Suspect]

REACTIONS (1)
  - Intraocular pressure test abnormal [Unknown]
